FAERS Safety Report 6584741-6 (Version None)
Quarter: 2010Q1

REPORT INFORMATION
  Report Type: 
  Country: None (occurrence: None)
  Receive Date: 20100217
  Receipt Date: 20100210
  Transmission Date: 20100710
  Serious: Yes (Death)
  Sender: FDA-Public Use
  Company Number: PHEH2010US02507

PATIENT
  Sex: Female

DRUGS (2)
  1. GLEEVEC [Suspect]
     Dosage: 600 MG, QD
     Route: 048
  2. SPRYCEL [Suspect]
     Dosage: 140 MG, QD

REACTIONS (1)
  - DEATH [None]
